FAERS Safety Report 20703233 (Version 2)
Quarter: 2022Q3

REPORT INFORMATION
  Report Type: Spontaneous
  Country: US (occurrence: US)
  Receive Date: 20220413
  Receipt Date: 20220928
  Transmission Date: 20221027
  Serious: No
  Sender: FDA-Public Use
  Company Number: US-ARGENX-2022-ARGX-US000475

PATIENT

DRUGS (2)
  1. VYVGART [Suspect]
     Active Substance: EFGARTIGIMOD ALFA-FCAB
     Indication: Myasthenia gravis
     Dosage: 630 MG, 1/WEEK
     Route: 042
     Dates: start: 20220303
  2. VYVGART [Suspect]
     Active Substance: EFGARTIGIMOD ALFA-FCAB
     Dosage: 630 MG, 1/WEEK FOR 4 WEEKS
     Dates: start: 20220707

REACTIONS (5)
  - Dizziness [Unknown]
  - Balance disorder [Unknown]
  - Drug effect less than expected [Unknown]
  - Incorrect product administration duration [Unknown]
  - Therapy non-responder [Unknown]

NARRATIVE: CASE EVENT DATE: 20220723
